FAERS Safety Report 9217500 (Version 3)
Quarter: 2013Q2

REPORT INFORMATION
  Report Type: Report from Study
  Country: CA (occurrence: CA)
  Receive Date: 20130408
  Receipt Date: 20130422
  Transmission Date: 20140414
  Serious: Yes (Other)
  Sender: FDA-Public Use
  Company Number: CA-ROCHE-1210214

PATIENT
  Age: 50 Year
  Sex: Female
  Weight: 113.4 kg

DRUGS (9)
  1. RITUXAN [Suspect]
     Indication: RHEUMATOID ARTHRITIS
     Dosage: LAST TREATMENT 17/APR/2012
     Route: 042
     Dates: start: 20120403
  2. DIPHENHYDRAMINE HCL [Concomitant]
     Route: 048
     Dates: start: 20120403
  3. ACETAMINOPHEN [Concomitant]
     Route: 042
     Dates: start: 20120403
  4. METHOTREXATE [Concomitant]
  5. FOLIC ACID [Concomitant]
  6. LOSEC (CANADA) [Concomitant]
  7. ASA (ACETYLSALICYLIC ACID) [Concomitant]
  8. SPIRIVA [Concomitant]
  9. ADVAIR [Concomitant]

REACTIONS (3)
  - Type 2 diabetes mellitus [Not Recovered/Not Resolved]
  - Weight increased [Not Recovered/Not Resolved]
  - Bone pain [Not Recovered/Not Resolved]
